FAERS Safety Report 9252373 (Version 1)
Quarter: 2013Q1

REPORT INFORMATION
  Report Type: Spontaneous
  Country: US (occurrence: None)
  Receive Date: 20130305
  Receipt Date: 20130305
  Transmission Date: 20140127
  Serious: Yes (Other)
  Sender: FDA-Public Use
  Company Number: 163-21880-12083053

PATIENT
  Age: 62 Year
  Sex: Male
  Weight: 72.58 kg

DRUGS (7)
  1. REVLIMID [Suspect]
     Indication: PLASMA CELL MYELOMA
     Route: 048
     Dates: start: 20080409
  2. ASPIRIN(ACETYLSALICYLIC ACID) [Concomitant]
  3. ATACAND (CANDESARTAN CILEXETIL) [Concomitant]
  4. VITAMINS [Concomitant]
  5. NEXIUM [Concomitant]
  6. ZOMETA(ZOLEDRONIC ACID) [Concomitant]
  7. METHYLPREDNISOLONE(METHYLPREDNISOLONE) [Concomitant]

REACTIONS (1)
  - Rash [None]
